FAERS Safety Report 18023075 (Version 1)
Quarter: 2020Q3

REPORT INFORMATION
  Report Type: Spontaneous
  Country: US (occurrence: US)
  Receive Date: 20200715
  Receipt Date: 20200715
  Transmission Date: 20201103
  Serious: No
  Sender: FDA-Public Use
  Company Number: US-GLAXOSMITHKLINE-US2020127736

PATIENT
  Age: 18 Year
  Sex: Male

DRUGS (2)
  1. NUCALA [Suspect]
     Active Substance: MEPOLIZUMAB
     Dosage: 100 MG
     Route: 065
  2. NUCALA [Suspect]
     Active Substance: MEPOLIZUMAB
     Indication: HYPEREOSINOPHILIC SYNDROME
     Dosage: 300 MG
     Route: 065

REACTIONS (6)
  - Product use in unapproved indication [Unknown]
  - Social problem [Unknown]
  - Therapeutic response unexpected [Unknown]
  - Off label use [Unknown]
  - Pharyngitis [Recovered/Resolved]
  - Eosinophil count decreased [Recovered/Resolved]
